FAERS Safety Report 10227776 (Version 1)
Quarter: 2014Q2

REPORT INFORMATION
  Report Type: Spontaneous
  Country: US (occurrence: None)
  Receive Date: 20140609
  Receipt Date: 20140609
  Transmission Date: 20141212
  Serious: No
  Sender: FDA-Public Use
  Company Number: None

PATIENT
  Age: 30 Year
  Sex: Female
  Weight: 54.43 kg

DRUGS (2)
  1. AMITIZA [Suspect]
     Indication: IRRITABLE BOWEL SYNDROME
     Dosage: 1 PILL TWICE DAILY TAKEN BY MOUTH
     Route: 048
     Dates: start: 20140531, end: 20140531
  2. AMITIZA [Suspect]
     Indication: CONSTIPATION
     Dosage: 1 PILL TWICE DAILY TAKEN BY MOUTH
     Route: 048
     Dates: start: 20140531, end: 20140531

REACTIONS (12)
  - Diarrhoea [None]
  - Headache [None]
  - Dizziness [None]
  - Dizziness [None]
  - Abdominal pain [None]
  - Gastrooesophageal reflux disease [None]
  - Flushing [None]
  - Asthenia [None]
  - Fatigue [None]
  - Nausea [None]
  - Rash macular [None]
  - Urticaria [None]
